FAERS Safety Report 23948552 (Version 2)
Quarter: 2024Q3

REPORT INFORMATION
  Report Type: Spontaneous
  Country: US (occurrence: US)
  Receive Date: 20240607
  Receipt Date: 20240709
  Transmission Date: 20241017
  Serious: Yes (Other)
  Sender: BRISTOL MYERS SQUIBB
  Company Number: US-BRISTOL-MYERS SQUIBB COMPANY-2024-092070

PATIENT
  Age: 71 Year
  Sex: Male

DRUGS (1)
  1. REVLIMID [Suspect]
     Active Substance: LENALIDOMIDE
     Indication: Plasma cell myeloma
     Route: 048

REACTIONS (8)
  - Muscle spasms [Unknown]
  - Skin tightness [Unknown]
  - Joint swelling [Unknown]
  - Hypotonia [Unknown]
  - Depression [Unknown]
  - Neuropathy peripheral [Unknown]
  - Blindness unilateral [Unknown]
  - Irritability [Unknown]

NARRATIVE: CASE EVENT DATE: 20231201
